FAERS Safety Report 11336821 (Version 1)
Quarter: 2015Q3

REPORT INFORMATION
  Report Type: Other
  Country: GB (occurrence: GB)
  Receive Date: 20150804
  Receipt Date: 20150804
  Transmission Date: 20151125
  Serious: Yes (Hospitalization)
  Sender: FDA-Public Use
  Company Number: GB-MYLANLABS-2015M1025079

PATIENT

DRUGS (10)
  1. BENDROFLUMETHIAZIDE [Suspect]
     Active Substance: BENDROFLUMETHIAZIDE
     Dosage: 2.5 MG, QD
     Dates: start: 1995, end: 20150709
  2. DIETHYLAMINE SALICYLATE [Concomitant]
     Active Substance: DIETHYLAMINE SALICYLATE
     Dosage: 1 DF, TID
  3. VISCOTEARS [Concomitant]
     Active Substance: CARBOMER
     Dosage: UNK, AS NECESSARY (2MG/G.)
  4. ACICLOVIR [Concomitant]
     Active Substance: ACYCLOVIR
     Dosage: 800 MG, 5XD
     Dates: start: 20150630, end: 20150706
  5. IRBESARTAN. [Suspect]
     Active Substance: IRBESARTAN
     Dosage: 300 MG, QD
  6. TRIMETHOPRIM. [Concomitant]
     Active Substance: TRIMETHOPRIM
     Dosage: 200 MG, BID
     Dates: start: 20150706
  7. FYBOGEL [Concomitant]
     Active Substance: PLANTAGO OVATA SEED
     Dosage: 3.5 G, UNK (AS DIRECTED.)
  8. DOXAZOSIN [Concomitant]
     Active Substance: DOXAZOSIN\DOXAZOSIN MESYLATE
     Dosage: 1 MG, QD
     Dates: start: 20150319
  9. PROCHLORPERAZINE. [Concomitant]
     Active Substance: PROCHLORPERAZINE
     Dosage: 6 MG, AS NECESSARY (TWICE A DAY AS NEEDED.)
     Route: 002
     Dates: start: 20150706
  10. QUININE [Concomitant]
     Active Substance: QUININE
     Dosage: 300 MG, QD (EACH NIGHT.)

REACTIONS (2)
  - Hyponatraemia [Recovering/Resolving]
  - Syncope [Recovering/Resolving]
